FAERS Safety Report 8772453 (Version 2)
Quarter: 2012Q4

REPORT INFORMATION
  Report Type: 
  Country: AR (occurrence: AR)
  Receive Date: 20120905
  Receipt Date: 20120911
  Transmission Date: 20130627
  Serious: Yes (Other)
  Sender: FDA-Public Use
  Company Number: AR-AMGEN-ARGSP2012053632

PATIENT
  Age: 42 Year
  Sex: Female

DRUGS (3)
  1. ENBREL [Suspect]
     Indication: RHEUMATOID ARTHRITIS
     Dosage: 25 mg, 2x/week
     Route: 058
     Dates: start: 20060712
  2. METHOTREXATE [Concomitant]
     Dosage: UNK
  3. DICLOFENAC [Concomitant]
     Dosage: UNK
     Dates: end: 201207

REACTIONS (4)
  - Coagulopathy [Recovered/Resolved]
  - Weight decreased [Recovered/Resolved]
  - Lung infection [Recovered/Resolved]
  - Gastritis bacterial [Recovered/Resolved]
